FAERS Safety Report 6536993-6 (Version None)
Quarter: 2010Q1

REPORT INFORMATION
  Report Type: 
  Country: None (occurrence: None)
  Receive Date: 20100107
  Receipt Date: 20091222
  Transmission Date: 20100710
  Serious: Yes (Hospitalization)
  Sender: FDA-Public Use
  Company Number: DSA_42264_2009

PATIENT
  Age: 87 Year
  Sex: Female

DRUGS (6)
  1. ENALAPRIL MALEATE [Suspect]
     Indication: HYPERTENSION
     Dosage: (5 MG QD, ORAL), (10 MG QD ORAL), (10 MG QD ORAL)
     Route: 048
     Dates: start: 20040709, end: 20070304
  2. ENALAPRIL MALEATE [Suspect]
     Indication: HYPERTENSION
     Dosage: (5 MG QD, ORAL), (10 MG QD ORAL), (10 MG QD ORAL)
     Route: 048
     Dates: start: 20070305, end: 20090623
  3. ENALAPRIL MALEATE [Suspect]
     Indication: HYPERTENSION
     Dosage: (5 MG QD, ORAL), (10 MG QD ORAL), (10 MG QD ORAL)
     Route: 048
     Dates: start: 20021205, end: 20090708
  4. HYDROCHLOROTHIAZIDE [Concomitant]
  5. L-THYROXIN [Concomitant]
  6. VERAPAMIL [Concomitant]

REACTIONS (3)
  - ANGIOEDEMA [None]
  - DYSPHAGIA [None]
  - SPEECH DISORDER [None]
